FAERS Safety Report 5581850-5 (Version None)
Quarter: 2008Q1

REPORT INFORMATION
  Report Type: 
  Country: None (occurrence: None)
  Receive Date: 20080104
  Receipt Date: 20071227
  Transmission Date: 20080703
  Serious: Yes (Other)
  Sender: FDA-Public Use
  Company Number: JP-PFIZER INC-2007108568

PATIENT
  Age: 80 Year
  Sex: Female

DRUGS (4)
  1. EPLERENONE [Suspect]
     Dosage: DAILY DOSE:50MG
     Route: 048
  2. RENIN-ANGIOTENSIN SYSTEM, AGENTS ACTING ON [Suspect]
     Route: 048
  3. LASIX [Suspect]
     Route: 048
  4. CRESTOR [Concomitant]
     Route: 048

REACTIONS (1)
  - POLYURIA [None]
